FAERS Safety Report 7859981-6 (Version None)
Quarter: 2011Q4

REPORT INFORMATION
  Report Type: 
  Country: None (occurrence: None)
  Receive Date: 20111026
  Receipt Date: 20111026
  Transmission Date: 20120403
  Serious: Yes (Other)
  Sender: FDA-Public Use
  Company Number: None

PATIENT
  Age: 61 Year
  Sex: Female
  Weight: 55.7924 kg

DRUGS (1)
  1. PROLIA [Suspect]
     Indication: OSTEOPOROSIS
     Dosage: 60 MG 6 MONTH SUBCUTANEOUSLY
     Route: 058
     Dates: start: 20111012

REACTIONS (2)
  - EAR PAIN [None]
  - DRUG INEFFECTIVE [None]
